FAERS Safety Report 7590426-X (Version None)
Quarter: 2011Q3

REPORT INFORMATION
  Report Type: 
  Country: None (occurrence: None)
  Receive Date: 20110705
  Receipt Date: 20110630
  Transmission Date: 20111222
  Serious: Yes (Other)
  Sender: FDA-Public Use
  Company Number: AU-PFIZER INC-2011145750

PATIENT
  Age: 61 Year
  Sex: Female

DRUGS (1)
  1. CABERGOLINE [Suspect]
     Indication: RESTLESS LEGS SYNDROME
     Dosage: UNK

REACTIONS (4)
  - RESTLESS LEGS SYNDROME [None]
  - PATHOLOGICAL GAMBLING [None]
  - SHOPLIFTING [None]
  - SUICIDAL IDEATION [None]
